FAERS Safety Report 5122081-2 (Version None)
Quarter: 2006Q4

REPORT INFORMATION
  Report Type: 
  Country: None (occurrence: None)
  Receive Date: 20061006
  Receipt Date: 20060808
  Transmission Date: 20070319
  Serious: Yes (Hospitalization, Other)
  Sender: FDA-Public Use
  Company Number: US-NOVOPROD-256129

PATIENT
  Age: 53 Year
  Sex: Male
  Weight: 114 kg

DRUGS (1)
  1. INNOFEM [Suspect]
     Indication: DRUG USE FOR UNKNOWN INDICATION
     Dosage: 2 TAB, SINGLE
     Dates: start: 20060714, end: 20060714

REACTIONS (3)
  - CIRCULATORY COLLAPSE [None]
  - TOXICOLOGIC TEST ABNORMAL [None]
  - VOMITING [None]
